FAERS Safety Report 8224658-4 (Version None)
Quarter: 2012Q1

REPORT INFORMATION
  Report Type: 
  Country: None (occurrence: None)
  Receive Date: 20120320
  Receipt Date: 20120320
  Transmission Date: 20120608
  Serious: No
  Sender: FDA-Public Use
  Company Number: None

PATIENT
  Age: 27 Year
  Sex: Female

DRUGS (2)
  1. LENSCALE ALLERGENIC EXTRACT ALK LOT G14992 IF85312 [Suspect]
     Indication: RHINITIS ALLERGIC
     Dosage: WEEKLY
     Dates: start: 20030502, end: 20111025
  2. LENSCALE ALLERGENIC EXTRACT ALK LOT G14992 IF85312 [Suspect]

REACTIONS (3)
  - DYSPNOEA [None]
  - CHEST DISCOMFORT [None]
  - LIP SWELLING [None]
